FAERS Safety Report 23664947 (Version 1)
Quarter: 2024Q1

REPORT INFORMATION
  Report Type: Spontaneous
  Country: US (occurrence: US)
  Receive Date: 20240322
  Receipt Date: 20240322
  Transmission Date: 20240410
  Serious: Yes (Hospitalization)
  Sender: FDA-Public Use
  Company Number: US-WOODWARD-2024-US-016264

PATIENT
  Age: 53 Year
  Sex: Male

DRUGS (2)
  1. CARVEDILOL [Suspect]
     Active Substance: CARVEDILOL
     Indication: Intentional overdose
     Dosage: UNKNOWN
  2. NIFEDIPINE [Suspect]
     Active Substance: NIFEDIPINE
     Indication: Intentional overdose
     Dosage: UNKNOWN

REACTIONS (3)
  - Intentional overdose [None]
  - Pulse pressure increased [Recovered/Resolved]
  - Shock [Recovered/Resolved]
